FAERS Safety Report 16540556 (Version 1)
Quarter: 2019Q3

REPORT INFORMATION
  Report Type: Spontaneous
  Country: PL (occurrence: PL)
  Receive Date: 20190708
  Receipt Date: 20190708
  Transmission Date: 20191004
  Serious: Yes (Hospitalization, Other)
  Sender: FDA-Public Use
  Company Number: PL-ACCORD-136276

PATIENT
  Age: 68 Year
  Sex: Female

DRUGS (5)
  1. BISOPROLOL [Suspect]
     Active Substance: BISOPROLOL
     Indication: ANGINA PECTORIS
     Dosage: 5 MG OMNE?IN DIE (OD)
  2. ACETYLSALICYLIC ACID [Suspect]
     Active Substance: ASPIRIN
     Indication: ANGINA PECTORIS
     Dosage: 75 MG OD
  3. RAMIPRIL. [Suspect]
     Active Substance: RAMIPRIL
     Indication: ANGINA PECTORIS
     Dosage: 5 MG OD
  4. PROPAFENONE. [Suspect]
     Active Substance: PROPAFENONE
     Indication: ANGINA PECTORIS
     Dosage: 150 MG BIS IN?DIE (BID)
  5. SIMVASTATIN. [Suspect]
     Active Substance: SIMVASTATIN
     Indication: ANGINA PECTORIS
     Dosage: 20 MG OD

REACTIONS (3)
  - Arrhythmia [Recovered/Resolved]
  - Pulmonary embolism [Unknown]
  - Bundle branch block left [Unknown]
